FAERS Safety Report 22958940 (Version 5)
Quarter: 2024Q1

REPORT INFORMATION
  Report Type: Spontaneous
  Country: JP (occurrence: JP)
  Receive Date: 20230919
  Receipt Date: 20240225
  Transmission Date: 20240409
  Serious: Yes (Other)
  Sender: FDA-Public Use
  Company Number: JP-GSKNCCC-Case-01810706_AE-75227

PATIENT

DRUGS (2)
  1. FLUTICASONE FUROATE\VILANTEROL TRIFENATATE [Suspect]
     Active Substance: FLUTICASONE FUROATE\VILANTEROL TRIFENATATE
     Indication: Asthma
     Dosage: 200 ?G, 1D, 1 INHALATION PER DOSE
     Dates: start: 202205, end: 20230310
  2. FLUTICASONE FUROATE [Concomitant]
     Active Substance: FLUTICASONE FUROATE
     Indication: Seasonal allergy
     Dosage: 1D, 2 SPRAYS FOR BOTH NASAL CAVITIES
     Route: 045
     Dates: start: 202301, end: 20230310

REACTIONS (11)
  - Cushing^s syndrome [Recovering/Resolving]
  - Adrenal insufficiency [Unknown]
  - Cushingoid [Recovering/Resolving]
  - Lipohypertrophy [Recovering/Resolving]
  - Central obesity [Recovering/Resolving]
  - Skin striae [Recovering/Resolving]
  - Dyslipidaemia [Recovering/Resolving]
  - Hypertension [Unknown]
  - Muscular weakness [Recovering/Resolving]
  - Oedema [Unknown]
  - Seasonal allergy [Unknown]

NARRATIVE: CASE EVENT DATE: 20220601
